FAERS Safety Report 8454052-2 (Version None)
Quarter: 2012Q2

REPORT INFORMATION
  Report Type: 
  Country: None (occurrence: None)
  Receive Date: 20120620
  Receipt Date: 20120614
  Transmission Date: 20120825
  Serious: Yes (Hospitalization)
  Sender: FDA-Public Use
  Company Number: US-PFIZER INC-2012144797

PATIENT
  Sex: Female
  Weight: 77.098 kg

DRUGS (5)
  1. REVATIO [Suspect]
     Indication: PULMONARY HYPERTENSION
     Dosage: 20 MG, 3X/DAY
     Dates: start: 20120511
  2. CELEBREX [Concomitant]
     Indication: ARTHRITIS
     Dosage: 200 MG, DAILY
  3. COZAAR [Concomitant]
     Dosage: 10 MG, DAILY
  4. HYDRALAZINE [Concomitant]
     Dosage: 10 MG, 3X/DAY
  5. LEUKERAN [Concomitant]
     Dosage: UNK

REACTIONS (1)
  - DEVICE RELATED INFECTION [None]
